FAERS Safety Report 7362158-4 (Version None)
Quarter: 2011Q1

REPORT INFORMATION
  Report Type: 
  Country: None (occurrence: None)
  Receive Date: 20110318
  Receipt Date: 20110209
  Transmission Date: 20110831
  Serious: Yes (Hospitalization)
  Sender: FDA-Public Use
  Company Number: DE-PFIZER INC-DE-WYE-H15071710

PATIENT
  Age: 77 Year
  Sex: Male
  Weight: 51 kg

DRUGS (9)
  1. PENTOXIFYLLINE [Concomitant]
     Indication: PERIPHERAL ARTERIAL OCCLUSIVE DISEASE
     Dosage: 600 MG, 1X/DAY
     Route: 048
     Dates: start: 20090801
  2. CLOPIDOGREL [Concomitant]
     Indication: ISCHAEMIC HEART DISEASE PROPHYLAXIS
     Dosage: 75 MG, UNK
     Route: 048
  3. TRIAMPUR COMPOSITUM [Concomitant]
     Indication: HYPERTENSION
     Dosage: 1 DF, 1X/DAY
     Route: 048
     Dates: start: 20090801
  4. PANTOPRAZOLE [Interacting]
     Indication: GASTRIC ULCER HAEMORRHAGE
     Dosage: 40.0 MG, 1X/DAY
     Route: 048
     Dates: start: 20090801
  5. NEBIVOLOL [Concomitant]
     Indication: HYPERTENSION
     Dosage: 5 MG, 1X/DAY
     Route: 048
     Dates: start: 20090801
  6. METRONIDAZOLE [Suspect]
     Indication: PNEUMONIA
     Dosage: 500.0 MG, 3X/DAY
     Route: 048
     Dates: start: 20090828, end: 20090904
  7. CEFOTIAM HYDROCHLORIDE [Interacting]
     Indication: PNEUMONIA
     Dosage: 2.0 G, 2X/DAY
     Route: 042
     Dates: start: 20090831, end: 20090903
  8. ACETYLSALICYLIC ACID [Suspect]
     Indication: ISCHAEMIC HEART DISEASE PROPHYLAXIS
     Dosage: 100.0 MG, 1X/DAY
     Route: 048
     Dates: start: 20090801
  9. HALOPERIDOL [Concomitant]
     Indication: DEMENTIA
     Dosage: 1 MG, 2X/DAY
     Route: 048

REACTIONS (7)
  - HAEMOGLOBIN DECREASED [None]
  - CLOSTRIDIUM DIFFICILE COLITIS [None]
  - DRUG INTERACTION [None]
  - PROCTOCOLITIS [None]
  - BLOOD POTASSIUM INCREASED [None]
  - BLOOD CREATININE INCREASED [None]
  - DRY MOUTH [None]
